FAERS Safety Report 12125535 (Version 2)
Quarter: 2016Q1

REPORT INFORMATION
  Report Type: Spontaneous
  Country: DK (occurrence: DK)
  Receive Date: 20160229
  Receipt Date: 20160310
  Transmission Date: 20160526
  Serious: Yes (Other)
  Sender: FDA-Public Use
  Company Number: DK-ROCHE-1716474

PATIENT
  Age: 67 Year
  Sex: Female

DRUGS (1)
  1. PEGASYS [Suspect]
     Active Substance: PEGINTERFERON ALFA-2A
     Indication: POLYCYTHAEMIA VERA
     Route: 065
     Dates: start: 200901, end: 20140627

REACTIONS (7)
  - Gait disturbance [Not Recovered/Not Resolved]
  - Off label use [Unknown]
  - Myalgia [Unknown]
  - Fatigue [Not Recovered/Not Resolved]
  - Hepatic enzyme abnormal [Unknown]
  - Muscular weakness [Not Recovered/Not Resolved]
  - Inclusion body myositis [Not Recovered/Not Resolved]

NARRATIVE: CASE EVENT DATE: 201401
